FAERS Safety Report 8068120-0 (Version None)
Quarter: 2012Q1

REPORT INFORMATION
  Report Type: 
  Country: None (occurrence: None)
  Receive Date: 20120124
  Receipt Date: 20110920
  Transmission Date: 20120608
  Serious: No
  Sender: FDA-Public Use
  Company Number: US-AMGEN-USASP2011048672

PATIENT
  Sex: Female

DRUGS (8)
  1. PROLIA [Suspect]
     Indication: OSTEOPOROSIS POSTMENOPAUSAL
     Dosage: 6 MG, QMO
     Dates: start: 20101201
  2. VITAMIN D [Concomitant]
  3. CORTIZONE 10 [Concomitant]
  4. FISH OIL [Concomitant]
  5. CALCIUM [Concomitant]
  6. BLOOD PRESSURE MEDICATION [Concomitant]
  7. VITAMIN E                          /00110501/ [Concomitant]
  8. VITAMIN C                          /00008001/ [Concomitant]

REACTIONS (4)
  - IMPAIRED HEALING [None]
  - PRURITUS [None]
  - SKIN ULCER [None]
  - SKIN HAEMORRHAGE [None]
